FAERS Safety Report 9470894 (Version 2)
Quarter: 2015Q1

REPORT INFORMATION
  Report Type: Spontaneous
  Country: US (occurrence: US)
  Receive Date: 20130822
  Receipt Date: 20150304
  Transmission Date: 20150721
  Serious: Yes (Disabling, Congenital Anomaly, Other)
  Sender: FDA-Public Use
  Company Number: US-ELI_LILLY_AND_COMPANY-US201308005435

PATIENT
  Sex: Female

DRUGS (1)
  1. PROZAC [Suspect]
     Active Substance: FLUOXETINE HYDROCHLORIDE
     Indication: DEPRESSION
     Dosage: UNK UNK, UNKNOWN
     Route: 064

REACTIONS (6)
  - Pierre Robin syndrome [Unknown]
  - Conductive deafness [Unknown]
  - Tympanic membrane perforation [Unknown]
  - Foetal exposure during pregnancy [Recovered/Resolved]
  - Otitis media chronic [Unknown]
  - Eustachian tube dysfunction [Unknown]
